FAERS Safety Report 21546729 (Version 2)
Quarter: 2022Q4

REPORT INFORMATION
  Report Type: Report from Study
  Country: KR (occurrence: KR)
  Receive Date: 20221103
  Receipt Date: 20221110
  Transmission Date: 20230113
  Serious: Yes (Other)
  Sender: FDA-Public Use
  Company Number: KR-TAKEDA-2022TUS079567

PATIENT
  Age: 45 Year
  Sex: Female
  Weight: 48 kg

DRUGS (27)
  1. VEDOLIZUMAB [Suspect]
     Active Substance: VEDOLIZUMAB
     Indication: Colitis ulcerative
     Dosage: 300 MILLIGRAM
     Route: 065
     Dates: start: 20211221
  2. FEROBA YOU [Concomitant]
     Indication: Iron deficiency anaemia
     Dosage: 256 MILLIGRAM, QD
     Route: 048
     Dates: start: 20210810
  3. Venoferrum [Concomitant]
     Indication: Iron deficiency anaemia
     Dosage: 100 MILLIGRAM
     Route: 042
     Dates: start: 20220423
  4. VITAMINS [Concomitant]
     Active Substance: VITAMINS
     Indication: Vitamin supplementation
     Dosage: 5 MILLILITER, QD
     Route: 042
     Dates: start: 20220902, end: 20220903
  5. FURTMAN [Concomitant]
     Indication: Mineral supplementation
     Dosage: 0.2 MILLILITER, QD
     Route: 042
     Dates: start: 20220902, end: 20220903
  6. KABITWIN PERI [Concomitant]
     Indication: Haematochezia
     Dosage: 1000 MILLILITER, QD
     Route: 042
     Dates: start: 20220902, end: 20220903
  7. PANTOPRAZOLE SODIUM [Concomitant]
     Active Substance: PANTOPRAZOLE SODIUM
     Indication: Gastritis prophylaxis
     Dosage: 40 MILLIGRAM, QD
     Route: 042
     Dates: start: 20220902, end: 20220905
  8. CEFTRIAXONE SODIUM [Concomitant]
     Active Substance: CEFTRIAXONE SODIUM
     Indication: Haematochezia
     Dosage: 2 GRAM, QD
     Route: 042
     Dates: start: 20220902, end: 20220902
  9. CIPROFLOXACIN [Concomitant]
     Active Substance: CIPROFLOXACIN
     Indication: Haematochezia
     Dosage: 400 MILLIGRAM, BID
     Route: 042
     Dates: start: 20220903, end: 20220906
  10. PROFA [Concomitant]
     Indication: Haematochezia
     Dosage: 1 GRAM, QD
     Route: 042
     Dates: start: 20220904, end: 20220904
  11. PERI OLIMEL N4E [Concomitant]
     Indication: Haematochezia
     Dosage: 1.5 LITER, QD
     Route: 042
     Dates: start: 20220904, end: 20220913
  12. MESALAMINE [Concomitant]
     Active Substance: MESALAMINE
     Dosage: 4800 MILLIGRAM, QD
     Route: 048
     Dates: start: 20201215
  13. ASACOL [Concomitant]
     Active Substance: MESALAMINE
     Dosage: 100 MILLILITER, BID
     Route: 054
     Dates: start: 20201215, end: 20220202
  14. ASACOL [Concomitant]
     Active Substance: MESALAMINE
     Dosage: 500 MILLIGRAM, QD
     Route: 054
     Dates: start: 20220203
  15. HYDROCORTISONE SODIUM SUCCINATE [Concomitant]
     Active Substance: HYDROCORTISONE SODIUM SUCCINATE
     Indication: Prophylaxis
     Dosage: 100 MILLIGRAM
     Route: 042
     Dates: start: 20220104, end: 20220203
  16. HYDROCORTISONE SODIUM SUCCINATE [Concomitant]
     Active Substance: HYDROCORTISONE SODIUM SUCCINATE
     Dosage: 70 MILLIGRAM, TID
     Route: 042
     Dates: start: 20220905, end: 20220908
  17. HYDROCORTISONE SODIUM SUCCINATE [Concomitant]
     Active Substance: HYDROCORTISONE SODIUM SUCCINATE
     Dosage: 60 MILLIGRAM, TID
     Route: 042
     Dates: start: 20220909, end: 20220911
  18. HYDROCORTISONE SODIUM SUCCINATE [Concomitant]
     Active Substance: HYDROCORTISONE SODIUM SUCCINATE
     Dosage: 50 MILLIGRAM, TID
     Route: 042
     Dates: start: 20220912, end: 20220912
  19. PENIRAMIN [Concomitant]
     Indication: Prophylaxis
     Dosage: 4 MILLIGRAM
     Route: 042
     Dates: start: 20220104, end: 20220203
  20. ULTRACET [Concomitant]
     Active Substance: ACETAMINOPHEN\TRAMADOL HYDROCHLORIDE
     Indication: Polyarthritis
     Dosage: UNK UNK, BID
     Route: 048
     Dates: start: 20220905, end: 20220911
  21. CELEBREX [Concomitant]
     Active Substance: CELECOXIB
     Indication: Polyarthritis
     Dosage: 200 MILLIGRAM, QD
     Route: 048
     Dates: start: 20220912, end: 20220919
  22. PREDNISOLONE [Concomitant]
     Active Substance: PREDNISOLONE
     Dosage: 30 MILLIGRAM
     Route: 048
     Dates: start: 20220913, end: 20220919
  23. PREDNISOLONE [Concomitant]
     Active Substance: PREDNISOLONE
     Dosage: 27.5 MILLIGRAM
     Route: 048
     Dates: start: 20220920, end: 20220926
  24. PREDNISOLONE [Concomitant]
     Active Substance: PREDNISOLONE
     Dosage: 25 MILLIGRAM
     Route: 048
     Dates: start: 20220927, end: 20221004
  25. PREDNISOLONE [Concomitant]
     Active Substance: PREDNISOLONE
     Dosage: 22.5 MILLIGRAM
     Route: 048
     Dates: start: 20221005, end: 20221011
  26. PREDNISOLONE [Concomitant]
     Active Substance: PREDNISOLONE
     Dosage: 20 MILLIGRAM
     Route: 048
     Dates: start: 20221012, end: 20221018
  27. PREDNISOLONE [Concomitant]
     Active Substance: PREDNISOLONE
     Dosage: 17.5 MILLIGRAM
     Route: 048
     Dates: start: 20221019, end: 20221025

REACTIONS (1)
  - Polyarthritis [Recovering/Resolving]

NARRATIVE: CASE EVENT DATE: 20220905
